FAERS Safety Report 26119316 (Version 1)
Quarter: 2025Q4

REPORT INFORMATION
  Report Type: Report from Study
  Country: CA (occurrence: CA)
  Receive Date: 20251204
  Receipt Date: 20251204
  Transmission Date: 20260118
  Serious: Yes (Other)
  Sender: CELLTRION
  Company Number: CA-CELLTRION INC.-2025CA013987

PATIENT

DRUGS (4)
  1. USTEKINUMAB [Suspect]
     Active Substance: USTEKINUMAB
     Indication: Crohn^s disease
     Dosage: 390 MG
     Route: 042
     Dates: start: 20250417
  2. USTEKINUMAB [Suspect]
     Active Substance: USTEKINUMAB
     Indication: Crohn^s disease
     Dosage: 90 MG, Q4WEEKS
     Route: 058
     Dates: start: 20250417
  3. USTEKINUMAB [Suspect]
     Active Substance: USTEKINUMAB
     Dosage: 90 MG, Q4WEEKS
     Route: 058
     Dates: start: 20250421
  4. USTEKINUMAB [Suspect]
     Active Substance: USTEKINUMAB
     Dosage: 40 MG EVERY 4 WEEKS
     Route: 058
     Dates: start: 20251111, end: 20251128

REACTIONS (10)
  - Ocular discomfort [Unknown]
  - Balance disorder [Unknown]
  - Abdominal distension [Unknown]
  - Acne [Unknown]
  - Arthralgia [Unknown]
  - Drug ineffective [Unknown]
  - Abdominal pain [Unknown]
  - Fatigue [Unknown]
  - Intentional product use issue [Unknown]
  - Therapy change [Unknown]

NARRATIVE: CASE EVENT DATE: 20250506
